FAERS Safety Report 14689134 (Version 1)
Quarter: 2018Q1

REPORT INFORMATION
  Report Type: Spontaneous
  Country: US (occurrence: US)
  Receive Date: 20180328
  Receipt Date: 20180328
  Transmission Date: 20180509
  Serious: Yes (Other)
  Sender: FDA-Public Use
  Company Number: US-GLAXOSMITHKLINE-US2018049800

PATIENT
  Age: 54 Year
  Sex: Female

DRUGS (11)
  1. BENLYSTA [Suspect]
     Active Substance: BELIMUMAB
     Dosage: UNK
  2. BENLYSTA [Suspect]
     Active Substance: BELIMUMAB
     Dosage: UNK
  3. CELEBREX [Concomitant]
     Active Substance: CELECOXIB
  4. TOPAMAX [Concomitant]
     Active Substance: TOPIRAMATE
  5. BENLYSTA [Suspect]
     Active Substance: BELIMUMAB
     Indication: SYSTEMIC LUPUS ERYTHEMATOSUS
     Dosage: 200 MG, WE
     Route: 058
     Dates: start: 201711
  6. WELLBUTRIN [Concomitant]
     Active Substance: BUPROPION HYDROCHLORIDE
  7. LISINOPRIL. [Concomitant]
     Active Substance: LISINOPRIL
  8. OXYCODONE [Concomitant]
     Active Substance: OXYCODONE
  9. BENLYSTA [Suspect]
     Active Substance: BELIMUMAB
     Indication: SYSTEMIC LUPUS ERYTHEMATOSUS
     Dosage: 800 MG, CYC
     Route: 042
     Dates: start: 201608, end: 201711
  10. PREDNISONE. [Concomitant]
     Active Substance: PREDNISONE
  11. TRAMADOL. [Concomitant]
     Active Substance: TRAMADOL

REACTIONS (4)
  - Breast necrosis [Unknown]
  - Blood antidiuretic hormone increased [Unknown]
  - Intraductal proliferative breast lesion [Unknown]
  - Breast calcifications [Unknown]

NARRATIVE: CASE EVENT DATE: 201704
